FAERS Safety Report 8373859-3 (Version None)
Quarter: 2012Q2

REPORT INFORMATION
  Report Type: 
  Country: None (occurrence: None)
  Receive Date: 20120521
  Receipt Date: 20120516
  Transmission Date: 20120825
  Serious: Yes (Other)
  Sender: FDA-Public Use
  Company Number: US-ROCHE-1064649

PATIENT
  Age: 74 Year
  Sex: Female
  Weight: 56.296 kg

DRUGS (3)
  1. WARFARIN SODIUM [Concomitant]
     Indication: THROMBOSIS
  2. HERCEPTIN [Suspect]
     Indication: BREAST CANCER
     Route: 042
     Dates: start: 20120130
  3. ANTICOAGULANT (UNSPECIFIED) [Concomitant]
     Indication: THROMBOSIS
     Route: 058

REACTIONS (3)
  - PLATELET COUNT DECREASED [None]
  - THROMBOSIS IN DEVICE [None]
  - DIARRHOEA [None]
